FAERS Safety Report 8271792-9 (Version None)
Quarter: 2012Q1

REPORT INFORMATION
  Report Type: 
  Country: None (occurrence: None)
  Receive Date: 20120312
  Receipt Date: 20111201
  Transmission Date: 20120608
  Serious: No
  Sender: FDA-Public Use
  Company Number: 2011SP056862

PATIENT
  Age: 58 Year
  Sex: Female

DRUGS (9)
  1. NEURONTIN [Concomitant]
  2. ZANEX [Concomitant]
  3. AMBIEN [Concomitant]
  4. WELLBUTRIN [Concomitant]
  5. SAPHRIS [Suspect]
     Indication: ANGER
     Dosage: 25 MG; QD; SL   5 MG;QD;    2.5 MG;QD;
     Route: 060
     Dates: start: 20111028
  6. SAPHRIS [Suspect]
     Indication: BIPOLAR DISORDER
     Dosage: 25 MG; QD; SL   5 MG;QD;    2.5 MG;QD;
     Route: 060
     Dates: start: 20111028
  7. SAPHRIS [Suspect]
     Indication: ANGER
     Dosage: 25 MG; QD; SL   5 MG;QD;    2.5 MG;QD;
     Route: 060
     Dates: start: 20110101, end: 20111214
  8. SAPHRIS [Suspect]
     Indication: BIPOLAR DISORDER
     Dosage: 25 MG; QD; SL   5 MG;QD;    2.5 MG;QD;
     Route: 060
     Dates: start: 20110101, end: 20111214
  9. LEXAPRO [Concomitant]

REACTIONS (5)
  - DIZZINESS [None]
  - MANIA [None]
  - WRONG TECHNIQUE IN DRUG USAGE PROCESS [None]
  - UNDERDOSE [None]
  - FEELING OF BODY TEMPERATURE CHANGE [None]
